FAERS Safety Report 8676586 (Version 7)
Quarter: 2014Q1

REPORT INFORMATION
  Report Type: Report from Study
  Country: US (occurrence: US)
  Receive Date: 20120722
  Receipt Date: 20140110
  Transmission Date: 20141002
  Serious: Yes (Other)
  Sender: FDA-Public Use
  Company Number: PHHO2012US010491

PATIENT
  Age: 72 Year
  Sex: Male
  Weight: 78 kg

DRUGS (16)
  1. SPIRONOLACTONE [Suspect]
     Dosage: 25 MG, QD
     Dates: start: 20110801, end: 20120329
  2. METFORMIN [Suspect]
     Dosage: 1000 MG, BID
     Dates: start: 201109, end: 20120329
  3. LOSARTAN [Suspect]
     Dosage: 25 MG, BID
     Dates: start: 201112, end: 20120329
  4. IBUPROFEN TABLETS USP [Suspect]
     Indication: RHEUMATOID ARTHRITIS
  5. OMEPRAZOLE [Suspect]
     Indication: GASTROOESOPHAGEAL REFLUX DISEASE
     Dosage: 20 MG, QD
     Dates: start: 201109, end: 20120329
  6. BLINDED ACZ885 [Suspect]
     Indication: CARDIOVASCULAR EVENT PROPHYLAXIS
     Dosage: CODE NOT BROKEN
     Route: 058
     Dates: start: 20110929, end: 20120329
  7. BLINDED ACZ885 [Suspect]
     Indication: CARDIOVASCULAR EVENT PROPHYLAXIS
     Dosage: CODE NOT BROKEN
     Route: 058
     Dates: start: 20110929, end: 20120329
  8. BLINDED NO TREATMENT RECEIVED [Suspect]
     Indication: CARDIOVASCULAR EVENT PROPHYLAXIS
     Dosage: CODE NOT BROKEN
     Route: 058
     Dates: start: 20110929, end: 20120329
  9. BLINDED PLACEBO [Suspect]
     Indication: CARDIOVASCULAR EVENT PROPHYLAXIS
     Dosage: CODE NOT BROKEN
     Route: 058
     Dates: start: 20110929, end: 20120329
  10. VICTOZA [Suspect]
     Indication: TYPE 2 DIABETES MELLITUS
     Dates: start: 20120214, end: 20120324
  11. LASIX [Suspect]
     Dosage: 40 MG, QD
     Dates: start: 20110801, end: 20120329
  12. CARVEDILOL [Concomitant]
     Indication: CARDIAC FAILURE CONGESTIVE
     Dosage: 25 MG, BID
     Dates: start: 20110801
  13. CRESTOR [Concomitant]
     Indication: HYPERCHOLESTEROLAEMIA
     Dosage: 20 MG, QD
     Dates: start: 2009
  14. ASA [Concomitant]
  15. POTASSIUM [Concomitant]
  16. MULTIVITAMINS [Concomitant]

REACTIONS (1)
  - Tubulointerstitial nephritis [Recovering/Resolving]
